FAERS Safety Report 15370230 (Version 1)
Quarter: 2018Q3

REPORT INFORMATION
  Report Type: Report from Study
  Country: ES (occurrence: ES)
  Receive Date: 20180911
  Receipt Date: 20180911
  Transmission Date: 20181010
  Serious: Yes (Hospitalization)
  Sender: FDA-Public Use
  Company Number: ES-ASTELLAS-2018US039496

PATIENT
  Age: 65 Year
  Sex: Male

DRUGS (7)
  1. DECAPEPTYL                         /00486501/ [Concomitant]
     Active Substance: GONADORELIN
     Indication: PRODUCT USED FOR UNKNOWN INDICATION
     Dosage: 22.8 MG, EVERY 6 MONTHS
     Route: 030
  2. SIMVASTATIN. [Concomitant]
     Active Substance: SIMVASTATIN
     Indication: PRODUCT USED FOR UNKNOWN INDICATION
     Route: 048
     Dates: start: 2013
  3. ENALAPRIL [Concomitant]
     Active Substance: ENALAPRIL
     Indication: PRODUCT USED FOR UNKNOWN INDICATION
     Route: 048
  4. LEVOTHYROXINE. [Concomitant]
     Active Substance: LEVOTHYROXINE
     Route: 048
     Dates: start: 20180808
  5. LEVOTHYROXINE. [Concomitant]
     Active Substance: LEVOTHYROXINE
     Indication: PRODUCT USED FOR UNKNOWN INDICATION
     Route: 048
     Dates: start: 20180728, end: 20180807
  6. DEXKETOPROFEN [Concomitant]
     Active Substance: DEXKETOPROFEN
     Indication: PRODUCT USED FOR UNKNOWN INDICATION
     Route: 048
     Dates: start: 20180527
  7. ENZALUTAMIDE [Suspect]
     Active Substance: ENZALUTAMIDE
     Indication: HORMONE-REFRACTORY PROSTATE CANCER
     Route: 048
     Dates: start: 20180425

REACTIONS (1)
  - Peripheral motor neuropathy [Not Recovered/Not Resolved]

NARRATIVE: CASE EVENT DATE: 20180829
